FAERS Safety Report 7804508-8 (Version None)
Quarter: 2011Q4

REPORT INFORMATION
  Report Type: 
  Country: None (occurrence: None)
  Receive Date: 20111010
  Receipt Date: 20110927
  Transmission Date: 20120403
  Serious: Yes (Hospitalization)
  Sender: FDA-Public Use
  Company Number: PHHO2009AU15699

PATIENT
  Sex: Male

DRUGS (1)
  1. EVEROLIMUS [Suspect]
     Indication: LIVER TRANSPLANT
     Dosage: 6.5MG DAILY
     Route: 048
     Dates: start: 20090702, end: 20091218

REACTIONS (3)
  - RENAL IMPAIRMENT [None]
  - BLOOD GLUCOSE INCREASED [None]
  - LIVER TRANSPLANT REJECTION [None]
